FAERS Safety Report 8483924-8 (Version None)
Quarter: 2012Q3

REPORT INFORMATION
  Report Type: 
  Country: None (occurrence: None)
  Receive Date: 20120703
  Receipt Date: 20120702
  Transmission Date: 20120928
  Serious: No
  Sender: FDA-Public Use
  Company Number: US-PFIZER INC-2010US-35078

PATIENT
  Sex: Female
  Weight: 73 kg

DRUGS (12)
  1. WARFARIN SODIUM [Concomitant]
     Dosage: UNK
     Route: 065
  2. HYDROCHLOROTHIAZIDE [Concomitant]
     Dosage: UNK
     Route: 065
  3. CALCIUM CARBONATE [Concomitant]
     Dosage: UNK
     Route: 065
  4. MULTI-VITAMINS [Concomitant]
     Dosage: UNK
  5. ALPRAZOLAM [Concomitant]
     Dosage: UNK
     Route: 065
  6. FOLIC ACID [Concomitant]
     Dosage: UNK
     Route: 065
  7. COENZYME Q10 [Concomitant]
     Dosage: UNK
     Route: 065
  8. CALAN [Suspect]
     Indication: CARDIAC DISORDER
     Dosage: 240 MG, UNK
     Route: 048
     Dates: start: 20100401
  9. CALAN [Suspect]
     Indication: CARDIAC DISORDER
     Dosage: 240 MG, UNK
     Route: 065
     Dates: end: 20100401
  10. ISOSORBIDE MONONITRATE [Concomitant]
     Dosage: UNK
     Route: 065
  11. ZETIA [Concomitant]
     Dosage: UNK
     Route: 065
  12. ASCORBIC ACID [Concomitant]
     Dosage: UNK
     Route: 065

REACTIONS (2)
  - DRUG DISPENSING ERROR [None]
  - OFF LABEL USE [None]
